FAERS Safety Report 5097026-4 (Version None)
Quarter: 2006Q3

REPORT INFORMATION
  Report Type: 
  Country: None (occurrence: None)
  Receive Date: 20060901
  Receipt Date: 20060815
  Transmission Date: 20061208
  Serious: Yes (Hospitalization)
  Sender: FDA-Public Use
  Company Number: US200608003345

PATIENT
  Age: 49 Year
  Sex: Female
  Weight: 120.2 kg

DRUGS (1)
  1. ZYPREXA [Suspect]
     Indication: DEPRESSION
     Dates: start: 19960101, end: 20040101

REACTIONS (5)
  - ANEURYSM [None]
  - CARDIAC DISORDER [None]
  - DIABETES MELLITUS [None]
  - HAEMORRHAGE [None]
  - HYPERTENSION [None]
